FAERS Safety Report 4285862-3 (Version None)
Quarter: 2004Q1

REPORT INFORMATION
  Report Type: 
  Country: None (occurrence: None)
  Receive Date: 20040204
  Receipt Date: 20040204
  Transmission Date: 20041129
  Serious: No
  Sender: FDA-Public Use
  Company Number: None

PATIENT
  Age: 48 Year
  Sex: Male
  Weight: 91.6266 kg

DRUGS (9)
  1. REMICADE [Suspect]
     Indication: RHEUMATOID ARTHRITIS
     Dosage: 300 MG Q 6 WKS IV
     Route: 042
  2. OXYCONTIN [Concomitant]
  3. PRILOSEC [Concomitant]
  4. NEURONTIN [Concomitant]
  5. KLONOPRIN [Concomitant]
  6. RISPERDAL [Concomitant]
  7. FLEXERIL [Concomitant]
  8. SIMENET 25/250 [Concomitant]
  9. HUMULIN 70/30 [Concomitant]

REACTIONS (1)
  - OSTEOMYELITIS [None]
